FAERS Safety Report 19714963 (Version 1)
Quarter: 2021Q3

REPORT INFORMATION
  Report Type: Spontaneous
  Country: JP (occurrence: JP)
  Receive Date: 20210818
  Receipt Date: 20210818
  Transmission Date: 20211014
  Serious: Yes (Death, Hospitalization, Other)
  Sender: FDA-Public Use
  Company Number: JP-TEVA-2021-JP-1942082

PATIENT
  Age: 52 Year
  Sex: Female

DRUGS (3)
  1. METHYLPREDNISOLONE. [Suspect]
     Active Substance: METHYLPREDNISOLONE
     Indication: DRUG REACTION WITH EOSINOPHILIA AND SYSTEMIC SYMPTOMS
     Dosage: .5 GRAM DAILY; PULSE THERAPY ADMINISTERED TWICE
     Route: 065
  2. SALAZOSULFAPYRIDINE [Suspect]
     Active Substance: SULFASALAZINE
     Indication: RHEUMATOID ARTHRITIS
     Route: 065
  3. PREDNISOLONE. [Concomitant]
     Active Substance: PREDNISOLONE
     Indication: DRUG REACTION WITH EOSINOPHILIA AND SYSTEMIC SYMPTOMS
     Dosage: 50 MILLIGRAM DAILY; 1 MG/KG/DAY
     Route: 048

REACTIONS (6)
  - Diabetic ketoacidosis [Unknown]
  - Drug reaction with eosinophilia and systemic symptoms [Fatal]
  - Subcutaneous haematoma [Fatal]
  - Cerebral haemorrhage [Fatal]
  - Coagulation factor deficiency [Fatal]
  - Type 1 diabetes mellitus [Unknown]
